FAERS Safety Report 9306188 (Version 1)
Quarter: 2013Q2

REPORT INFORMATION
  Report Type: Spontaneous
  Country: FR (occurrence: FR)
  Receive Date: 20130523
  Receipt Date: 20130523
  Transmission Date: 20140414
  Serious: Yes (Hospitalization)
  Sender: FDA-Public Use
  Company Number: FR-GLAXOSMITHKLINE-B0752233A

PATIENT
  Sex: Male

DRUGS (9)
  1. REQUIP [Suspect]
     Indication: PARKINSON^S DISEASE
     Route: 048
     Dates: start: 200004, end: 200801
  2. TRIVASTAL [Concomitant]
     Indication: PARKINSON^S DISEASE
     Route: 065
  3. ARTANE [Concomitant]
     Indication: PARKINSON^S DISEASE
     Route: 065
  4. SINEMET [Concomitant]
  5. STALEVO [Concomitant]
  6. EFFEXOR [Concomitant]
     Route: 065
     Dates: end: 2007
  7. MOTILIUM [Concomitant]
     Route: 065
  8. ATARAX [Concomitant]
  9. LEXOMIL [Concomitant]

REACTIONS (12)
  - Pathological gambling [Unknown]
  - Impulsive behaviour [Unknown]
  - Abnormal behaviour [Unknown]
  - Personality change [Unknown]
  - Mental disorder [Unknown]
  - Theft [Unknown]
  - Somnolence [Unknown]
  - Insomnia [Unknown]
  - Impulse-control disorder [Unknown]
  - Substance-induced psychotic disorder [Unknown]
  - Bulimia nervosa [Recovering/Resolving]
  - Orthostatic hypotension [Unknown]
